FAERS Safety Report 9132148 (Version 6)
Quarter: 2013Q2

REPORT INFORMATION
  Report Type: Report from Study
  Country: US (occurrence: US)
  Receive Date: 20130301
  Receipt Date: 20130513
  Transmission Date: 20140414
  Serious: Yes (Death, Life-Threatening, Hospitalization, Other)
  Sender: FDA-Public Use
  Company Number: US-NOVOPROD-372142

PATIENT
  Age: 65 Year
  Sex: Male
  Weight: 85.4 kg

DRUGS (1)
  1. LIRAGLUTIDE FLEXPEN [Suspect]
     Indication: TYPE 2 DIABETES MELLITUS
     Dosage: 1.8 MG, QD
     Route: 058
     Dates: start: 20120309, end: 20130115

REACTIONS (2)
  - Hepatic cancer metastatic [Not Recovered/Not Resolved]
  - Hepatic encephalopathy [Fatal]
